FAERS Safety Report 9493168 (Version 3)
Quarter: 2013Q3

REPORT INFORMATION
  Report Type: Spontaneous
  Country: JP (occurrence: JP)
  Receive Date: 20130902
  Receipt Date: 20130913
  Transmission Date: 20140515
  Serious: Yes (Other)
  Sender: FDA-Public Use
  Company Number: JP-AMGEN-JPNSP2013050862

PATIENT
  Age: 80 Year
  Sex: Male
  Weight: 51 kg

DRUGS (13)
  1. ARANESP [Suspect]
     Indication: NEPHROGENIC ANAEMIA
     Dosage: 60 MUG, QMO
     Route: 058
     Dates: start: 20120706, end: 20130313
  2. ALLOPURINOL [Concomitant]
     Dosage: UNK
     Route: 048
  3. VOGLIBOSE [Concomitant]
     Indication: DIABETES MELLITUS
     Dosage: 0.2 MG, TID
     Route: 048
  4. VOGLIBOSE [Concomitant]
     Dosage: 0.2 MG, TID
     Route: 048
  5. FEBURIC [Concomitant]
     Indication: HYPERURICAEMIA
     Dosage: 30 MG, QD
     Route: 048
     Dates: start: 201207
  6. LIPITOR [Concomitant]
     Indication: HYPERLIPIDAEMIA
     Dosage: 10 MG, QD
     Route: 048
  7. BAYASPIRIN [Concomitant]
     Dosage: 100 MG, QD
     Route: 048
  8. BLOPRESS [Concomitant]
     Indication: HYPERTENSION
     Dosage: 8 MG, QD
     Route: 048
  9. ALLEGRA [Concomitant]
     Dosage: 60 MG, QD
     Route: 048
     Dates: start: 201207
  10. THYRADIN S [Concomitant]
     Indication: HYPOTHYROIDISM
     Dosage: 50 MUG, QD
     Route: 048
     Dates: start: 201209
  11. THYRADIN S [Concomitant]
     Dosage: 50 MUG, QD
  12. NOVOLIN R [Concomitant]
     Indication: DIABETES MELLITUS
     Dosage: 10 DF, UNK
     Route: 058
     Dates: start: 201212
  13. LASIX [Concomitant]
     Indication: RENAL FAILURE
     Dosage: 20 MG, BID
     Route: 048

REACTIONS (2)
  - Eosinophilia [Recovering/Resolving]
  - Pruritus [Recovering/Resolving]
